FAERS Safety Report 20680727 (Version 1)
Quarter: 2022Q2

REPORT INFORMATION
  Report Type: Spontaneous
  Country: US (occurrence: None)
  Receive Date: 20220405
  Receipt Date: 20220405
  Transmission Date: 20220721
  Serious: No
  Sender: FDA-Public Use
  Company Number: None

PATIENT
  Sex: Female

DRUGS (2)
  1. DEVICE [Suspect]
     Active Substance: DEVICE
     Indication: Pulmonary arterial hypertension
     Dosage: FREQUENCY: CONTINUOUS
     Route: 042
     Dates: start: 20210128
  2. TREPROSTINIL [Suspect]
     Active Substance: TREPROSTINIL

REACTIONS (4)
  - Migraine [None]
  - Diarrhoea [None]
  - Device power source issue [None]
  - Device infusion issue [None]
